FAERS Safety Report 6914146-7 (Version None)
Quarter: 2010Q3

REPORT INFORMATION
  Report Type: 
  Country: None (occurrence: None)
  Receive Date: 20100809
  Receipt Date: 20100727
  Transmission Date: 20110219
  Serious: Yes (Hospitalization, Other)
  Sender: FDA-Public Use
  Company Number: US-PFIZER INC-2010094946

PATIENT
  Sex: Male
  Weight: 128.35 kg

DRUGS (8)
  1. CHANTIX [Suspect]
     Indication: SMOKING CESSATION THERAPY
     Dosage: 0.5 MG, 1X/DAY
     Route: 048
     Dates: start: 20100701, end: 20100701
  2. GEODON [Suspect]
     Indication: BIPOLAR DISORDER
     Dosage: 80 MG, 2X/DAY
     Route: 048
  3. XANAX [Suspect]
     Indication: ANXIETY
     Dosage: 3 MG, 3X/DAY
     Route: 048
  4. XANAX [Suspect]
     Indication: DEPRESSION
  5. ZOLOFT [Suspect]
     Indication: ANXIETY
     Dosage: 150 MG, DAILY
     Route: 048
  6. ZOLOFT [Suspect]
     Indication: DEPRESSION
  7. OXYCONTIN [Suspect]
     Indication: BACK PAIN
     Dosage: 30 MG, UNK
     Route: 048
  8. OXYCONTIN [Suspect]
     Indication: SPINAL FUSION SURGERY

REACTIONS (11)
  - BLOOD CALCIUM INCREASED [None]
  - BLOOD GLUCOSE INCREASED [None]
  - CARDIAC ARREST [None]
  - CARDIAC DISORDER [None]
  - COMA [None]
  - CONVULSION [None]
  - FEELING ABNORMAL [None]
  - HYPERTENSION [None]
  - NERVOUS SYSTEM DISORDER [None]
  - SUICIDAL IDEATION [None]
  - SUICIDE ATTEMPT [None]
